FAERS Safety Report 18319600 (Version 1)
Quarter: 2020Q3

REPORT INFORMATION
  Report Type: Spontaneous
  Country: US (occurrence: US)
  Receive Date: 20200928
  Receipt Date: 20200928
  Transmission Date: 20201103
  Serious: No
  Sender: FDA-Public Use
  Company Number: US-MYLANLABS-2020M1081899

PATIENT
  Sex: Male

DRUGS (1)
  1. KETOCONAZOLE FOAM [Suspect]
     Active Substance: KETOCONAZOLE
     Indication: ONYCHOMYCOSIS
     Dosage: 1 UNK(1X ONLY)
     Route: 003
     Dates: end: 20200922

REACTIONS (1)
  - Off label use [Unknown]
